FAERS Safety Report 24989427 (Version 1)
Quarter: 2025Q1

REPORT INFORMATION
  Report Type: Spontaneous
  Country: US (occurrence: US)
  Receive Date: 20250220
  Receipt Date: 20250220
  Transmission Date: 20250408
  Serious: Yes (Disabling)
  Sender: SPECGX
  Company Number: US-SPECGX-T202500482

PATIENT
  Age: 31 Year
  Sex: Female

DRUGS (1)
  1. METHADONE [Suspect]
     Active Substance: METHADONE HYDROCHLORIDE
     Indication: Drug use disorder
     Route: 065

REACTIONS (1)
  - Imprisonment [Unknown]
